FAERS Safety Report 6597119-6 (Version None)
Quarter: 2010Q1

REPORT INFORMATION
  Report Type: 
  Country: None (occurrence: None)
  Receive Date: 20100223
  Receipt Date: 20100212
  Transmission Date: 20100710
  Serious: Yes (Hospitalization)
  Sender: FDA-Public Use
  Company Number: JP-BAXTER-2010BH003204

PATIENT
  Age: 68 Year
  Sex: Female

DRUGS (11)
  1. ENDOXAN BAXTER [Suspect]
     Indication: LYMPHOMA
     Route: 041
     Dates: start: 20091218, end: 20091218
  2. ENDOXAN BAXTER [Suspect]
     Route: 041
     Dates: start: 20091106, end: 20091106
  3. ENDOXAN BAXTER [Suspect]
     Route: 041
     Dates: start: 20091013, end: 20091013
  4. ENDOXAN BAXTER [Suspect]
     Route: 041
     Dates: start: 20090918, end: 20090918
  5. ENDOXAN BAXTER [Suspect]
     Route: 041
     Dates: start: 20090826, end: 20090826
  6. ENDOXAN BAXTER [Suspect]
     Route: 041
     Dates: start: 20090803, end: 20090803
  7. PL [Suspect]
     Indication: NASOPHARYNGITIS
     Route: 048
     Dates: start: 20100104, end: 20100106
  8. BAKTAR [Suspect]
     Indication: INFECTION PROPHYLAXIS
     Route: 048
     Dates: start: 20090814, end: 20100114
  9. PREDONINE [Suspect]
     Indication: PROPHYLAXIS OF NAUSEA AND VOMITING
     Route: 048
     Dates: start: 20090803, end: 20100101
  10. RAMOSETRON HYDROCHLORIDE [Suspect]
     Indication: PROPHYLAXIS OF NAUSEA AND VOMITING
     Dates: start: 20090803
  11. KETOPROFEN [Suspect]
     Indication: DRUG USE FOR UNKNOWN INDICATION

REACTIONS (4)
  - HEADACHE [None]
  - HEPATITIS ACUTE [None]
  - RHINORRHOEA [None]
  - SNEEZING [None]
